FAERS Safety Report 16629138 (Version 1)
Quarter: 2019Q3

REPORT INFORMATION
  Report Type: Other
  Country: IL (occurrence: IL)
  Receive Date: 20190725
  Receipt Date: 20190725
  Transmission Date: 20191004
  Serious: No
  Sender: FDA-Public Use
  Company Number: IL-LAURUS LABS LIMITED-201900272

PATIENT

DRUGS (1)
  1. HYDROXYCHLOROQUINE SULFATE. [Suspect]
     Active Substance: HYDROXYCHLOROQUINE SULFATE
     Indication: ORAL LICHEN PLANUS
     Dosage: PER DAY
     Route: 065

REACTIONS (1)
  - Skin hyperpigmentation [Unknown]
